FAERS Safety Report 5547146-2 (Version None)
Quarter: 2007Q4

REPORT INFORMATION
  Report Type: 
  Country: None (occurrence: None)
  Receive Date: 20071211
  Receipt Date: 20070312
  Transmission Date: 20080405
  Serious: No
  Sender: FDA-Public Use
  Company Number: US-AMGEN-KDL213369

PATIENT
  Sex: Male
  Weight: 73.1 kg

DRUGS (6)
  1. ENBREL [Suspect]
     Indication: RHEUMATOID ARTHRITIS
     Route: 058
     Dates: start: 20070222
  2. METHOTREXATE [Concomitant]
     Route: 048
     Dates: start: 20010101
  3. NAPROSYN [Concomitant]
     Dates: start: 20000101
  4. RITALIN [Concomitant]
  5. VENTOLIN [Concomitant]
  6. LEUCOVORIN CALCIUM [Concomitant]

REACTIONS (3)
  - NASOPHARYNGITIS [None]
  - PHARYNGOLARYNGEAL PAIN [None]
  - PULMONARY CONGESTION [None]
